FAERS Safety Report 9035100 (Version 1)
Quarter: 2013Q1

REPORT INFORMATION
  Report Type: Report from Study
  Country: US (occurrence: US)
  Receive Date: 20130129
  Receipt Date: 20130129
  Transmission Date: 20140127
  Serious: No
  Sender: FDA-Public Use
  Company Number: US-ABBOTT-12P-163-0889134-00

PATIENT
  Age: 20 Year
  Sex: Female

DRUGS (3)
  1. HUMIRA 40 MG/0.8 ML PEN [Suspect]
     Indication: CROHN^S DISEASE
  2. PENTASA [Concomitant]
     Indication: CROHN^S DISEASE
     Dosage: THINKS 450MG, BID
     Route: 048
  3. IRON [Concomitant]
     Indication: CROHN^S DISEASE

REACTIONS (3)
  - Incorrect product storage [Unknown]
  - Medication error [Unknown]
  - Incorrect drug administration duration [Unknown]
